FAERS Safety Report 20697351 (Version 1)
Quarter: 2022Q2

REPORT INFORMATION
  Report Type: Spontaneous
  Country: US (occurrence: None)
  Receive Date: 20220408
  Receipt Date: 20220408
  Transmission Date: 20220721
  Serious: Yes (Hospitalization)
  Sender: FDA-Public Use
  Company Number: None

PATIENT
  Sex: Male

DRUGS (4)
  1. ABIRATERONE ACETATE [Suspect]
     Active Substance: ABIRATERONE ACETATE
     Indication: Benign prostatic hyperplasia
     Dosage: FREQUENCY : DAILY;?
     Route: 048
     Dates: start: 202203
  2. ABIRATERONE ACETATE [Suspect]
     Active Substance: ABIRATERONE ACETATE
     Indication: Lower urinary tract symptoms
  3. PREDNISONE [Suspect]
     Active Substance: PREDNISONE
     Indication: Lower urinary tract symptoms
     Dosage: FREQUENCY : DAILY;?
     Route: 048
     Dates: start: 202203
  4. PREDNISONE [Suspect]
     Active Substance: PREDNISONE
     Indication: Benign prostatic hyperplasia

REACTIONS (3)
  - Fall [None]
  - Rib fracture [None]
  - Bone cancer [None]
